FAERS Safety Report 11403984 (Version 1)
Quarter: 2015Q3

REPORT INFORMATION
  Report Type: Spontaneous
  Country: US (occurrence: None)
  Receive Date: 20150820
  Receipt Date: 20150820
  Transmission Date: 20151125
  Serious: No
  Sender: FDA-Public Use
  Company Number: None

PATIENT
  Age: 77 Year
  Sex: Female

DRUGS (1)
  1. 5-FLUOROURACIL [Suspect]
     Active Substance: FLUOROURACIL
     Indication: BASAL CELL CARCINOMA
     Dosage: APPLIED TO A SURFACE, USUALLY THE SKIN
     Route: 061
     Dates: start: 20150801, end: 20150815

REACTIONS (1)
  - Accidental exposure to product [None]

NARRATIVE: CASE EVENT DATE: 20150809
